FAERS Safety Report 19207108 (Version 1)
Quarter: 2021Q2

REPORT INFORMATION
  Report Type: Spontaneous
  Country: CA (occurrence: CA)
  Receive Date: 20210503
  Receipt Date: 20210503
  Transmission Date: 20210717
  Serious: Yes (Other)
  Sender: FDA-Public Use
  Company Number: CA-SAMSUNG BIOEPIS-SB-2021-10814

PATIENT
  Age: 75 Year
  Sex: Female
  Weight: 83 kg

DRUGS (2)
  1. INFLIXIMAB [Suspect]
     Active Substance: INFLIXIMAB
     Indication: CROHN^S DISEASE
     Route: 042
  2. PENTASA [Concomitant]
     Active Substance: MESALAMINE
     Indication: PRODUCT USED FOR UNKNOWN INDICATION
     Dosage: UNKNOWN
     Route: 065

REACTIONS (15)
  - Chills [Unknown]
  - Headache [Unknown]
  - Hypersomnia [Unknown]
  - Incorrect dose administered [Unknown]
  - Abscess [Unknown]
  - Hernia [Unknown]
  - Nausea [Unknown]
  - Pyoderma [Unknown]
  - Blood pressure increased [Unknown]
  - Malaise [Unknown]
  - Off label use [Unknown]
  - Feeling abnormal [Unknown]
  - Intentional product use issue [Unknown]
  - Oxygen saturation decreased [Unknown]
  - Drug ineffective [Unknown]
